FAERS Safety Report 4875712-6 (Version None)
Quarter: 2006Q1

REPORT INFORMATION
  Report Type: 
  Country: None (occurrence: None)
  Receive Date: 20060105
  Receipt Date: 20051220
  Transmission Date: 20060701
  Serious: Yes (Other)
  Sender: FDA-Public Use
  Company Number: PHBS2005ES18270

PATIENT
  Age: 82 Year
  Sex: Male

DRUGS (3)
  1. VISUDYNE [Suspect]
     Indication: MACULAR DEGENERATION
     Dosage: 15 MG DAILY IV
     Route: 042
     Dates: start: 20051114, end: 20051114
  2. AVASTIN [Concomitant]
  3. ATENOLOL [Concomitant]

REACTIONS (3)
  - PERIPHERAL EMBOLISM [None]
  - PLATELET COUNT DECREASED [None]
  - PULMONARY EMBOLISM [None]
